FAERS Safety Report 7661224-3 (Version None)
Quarter: 2011Q3

REPORT INFORMATION
  Report Type: 
  Country: None (occurrence: None)
  Receive Date: 20110805
  Receipt Date: 20101115
  Transmission Date: 20111222
  Serious: No
  Sender: FDA-Public Use
  Company Number: US-ABBOTT-10P-163-0685408-00

PATIENT
  Sex: Male
  Weight: 97.61 kg

DRUGS (8)
  1. NIASPAN [Suspect]
     Indication: HYPERLIPIDAEMIA
     Dosage: AT NIGHT
     Dates: start: 20101108
  2. PLAVIX [Concomitant]
     Indication: PRODUCT USED FOR UNKNOWN INDICATION
  3. LIPITOR [Suspect]
     Indication: PRODUCT USED FOR UNKNOWN INDICATION
     Dates: start: 20101108
  4. BENAZEPRIL HYDROCHLORIDE [Concomitant]
     Indication: PRODUCT USED FOR UNKNOWN INDICATION
  5. ASPIRIN [Concomitant]
     Indication: PRODUCT USED FOR UNKNOWN INDICATION
  6. GLIPIZIDE [Concomitant]
     Indication: PRODUCT USED FOR UNKNOWN INDICATION
  7. METAPROLOL [Concomitant]
     Indication: PRODUCT USED FOR UNKNOWN INDICATION
  8. TYLENOL-500 [Concomitant]
     Indication: PRODUCT USED FOR UNKNOWN INDICATION

REACTIONS (2)
  - MYALGIA [None]
  - PRURITUS [None]
